FAERS Safety Report 12869524 (Version 1)
Quarter: 2016Q4

REPORT INFORMATION
  Report Type: Spontaneous
  Country: DE (occurrence: DE)
  Receive Date: 20161020
  Receipt Date: 20161020
  Transmission Date: 20170207
  Serious: Yes (Other)
  Sender: FDA-Public Use
  Company Number: DE-BIOGEN-2016BI00307028

PATIENT
  Sex: Female

DRUGS (1)
  1. TYSABRI [Suspect]
     Active Substance: NATALIZUMAB
     Indication: PRODUCT USED FOR UNKNOWN INDICATION
     Dosage: INFUSED OVER 1HR
     Route: 042
     Dates: start: 2007

REACTIONS (3)
  - Influenza like illness [Recovered/Resolved]
  - Multiple sclerosis relapse [Recovered/Resolved]
  - Bone marrow toxicity [Recovered/Resolved]

NARRATIVE: CASE EVENT DATE: 2012
